FAERS Safety Report 9356454 (Version 1)
Quarter: 2013Q2

REPORT INFORMATION
  Report Type: Spontaneous
  Country: FR (occurrence: FR)
  Receive Date: 20130619
  Receipt Date: 20130619
  Transmission Date: 20140414
  Serious: Yes (Other)
  Sender: FDA-Public Use
  Company Number: FR-BRISTOL-MYERS SQUIBB COMPANY-18718452

PATIENT
  Age: 62 Year
  Sex: Male

DRUGS (4)
  1. HYDREA CAPS 500 MG [Suspect]
     Indication: ESSENTIAL THROMBOCYTHAEMIA
     Route: 048
     Dates: start: 20130221, end: 20130430
  2. TENORMINE [Concomitant]
  3. OMEPRAZOLE [Concomitant]
  4. PRAVASTATINE [Concomitant]

REACTIONS (1)
  - Cutaneous sarcoidosis [Not Recovered/Not Resolved]
